FAERS Safety Report 8431159-7 (Version None)
Quarter: 2012Q2

REPORT INFORMATION
  Report Type: 
  Country: None (occurrence: None)
  Receive Date: 20120612
  Receipt Date: 20120530
  Transmission Date: 20120825
  Serious: Yes (Other)
  Sender: FDA-Public Use
  Company Number: CHPA2012US011372

PATIENT

DRUGS (1)
  1. EXCEDRIN (MIGRAINE) [Suspect]
     Dosage: UNK DF, UNK

REACTIONS (1)
  - DRUG DEPENDENCE [None]
